FAERS Safety Report 5828157-6 (Version None)
Quarter: 2008Q3

REPORT INFORMATION
  Report Type: 
  Country: None (occurrence: None)
  Receive Date: 20080729
  Receipt Date: 20080723
  Transmission Date: 20090109
  Serious: Yes (Other)
  Sender: FDA-Public Use
  Company Number: 062-21880-08071333

PATIENT
  Age: 59 Year
  Sex: Male
  Weight: 102 kg

DRUGS (2)
  1. REVLIMID [Suspect]
     Indication: PLASMACYTOMA
     Dosage: 15 MG, 1 IN 1 D, ORAL
     Route: 048
     Dates: start: 20071101, end: 20080101
  2. DEXAMETHASONE TAB [Concomitant]

REACTIONS (4)
  - COORDINATION ABNORMAL [None]
  - MULTIPLE MYELOMA [None]
  - PARKINSONISM [None]
  - TREMOR [None]
